FAERS Safety Report 9301284 (Version 3)
Quarter: 2013Q3

REPORT INFORMATION
  Report Type: Spontaneous
  Country: US (occurrence: US)
  Receive Date: 20130521
  Receipt Date: 20130701
  Transmission Date: 20140515
  Serious: Yes (Other)
  Sender: FDA-Public Use
  Company Number: US-UCBSA-086006

PATIENT
  Age: 56 Year
  Sex: Female
  Weight: 68.49 kg

DRUGS (4)
  1. CIMZIA [Suspect]
     Indication: RHEUMATOID ARTHRITIS
     Dosage: EXP DATE FOR 76447: ??/DEC/2013
     Dates: start: 20121120
  2. CIMZIA [Interacting]
     Indication: RHEUMATOID ARTHRITIS
     Dates: end: 2012
  3. PREDNISONE [Interacting]
     Indication: INFLAMMATION
     Dosage: DAILY DOSE: 40 MG
     Dates: start: 20130504, end: 20130509
  4. PREDNISONE [Interacting]
     Indication: SEASONAL ALLERGY
     Dosage: DAILY DOSE: 40 MG
     Dates: start: 20130504, end: 20130509

REACTIONS (6)
  - Rheumatoid arthritis [Not Recovered/Not Resolved]
  - Drug hypersensitivity [Recovered/Resolved]
  - Hypersensitivity [Unknown]
  - Insomnia [Unknown]
  - Feeling jittery [Unknown]
  - Drug interaction [Recovered/Resolved]
